FAERS Safety Report 6917733-5 (Version None)
Quarter: 2010Q3

REPORT INFORMATION
  Report Type: 
  Country: None (occurrence: None)
  Receive Date: 20100810
  Receipt Date: 20090921
  Transmission Date: 20110219
  Serious: No
  Sender: FDA-Public Use
  Company Number: US-TYCO HEALTHCARE/MALLINCKRODT-T200901773

PATIENT
  Sex: Female
  Weight: 49.887 kg

DRUGS (5)
  1. PAMELOR [Suspect]
     Indication: BIPOLAR DISORDER
     Dosage: 25 MG, TID
     Route: 048
     Dates: start: 20090917, end: 20090919
  2. NORPRESS [Suspect]
     Indication: BIPOLAR DISORDER
     Dosage: 25 MG, 2 TABS BID
     Route: 048
     Dates: end: 20090916
  3. CLONAZEPAM [Concomitant]
     Indication: SLEEP DISORDER
     Dosage: 0.5 MG, PRN
     Route: 048
  4. SEROQUEL [Concomitant]
     Indication: SLEEP DISORDER
     Dosage: UNK
     Route: 048
  5. LITHIUM [Concomitant]
     Indication: BIPOLAR DISORDER
     Dosage: 250 MG, TID
     Route: 048

REACTIONS (2)
  - IRRITABILITY [None]
  - SLUGGISHNESS [None]
